FAERS Safety Report 21822725 (Version 1)
Quarter: 2023Q1

REPORT INFORMATION
  Report Type: Report from Study
  Country: US (occurrence: US)
  Receive Date: 20230105
  Receipt Date: 20230105
  Transmission Date: 20230418
  Serious: Yes (Hospitalization, Other)
  Sender: FDA-Public Use
  Company Number: US-GILEAD-2022-0611342

PATIENT
  Sex: Male

DRUGS (1)
  1. EMTRICITABINE\RILPIVIRINE\TENOFOVIR DISOPROXIL FUMARATE [Suspect]
     Active Substance: EMTRICITABINE\RILPIVIRINE\TENOFOVIR DISOPROXIL FUMARATE
     Indication: HIV infection
     Dosage: 525MG, ORAL, ONCE DAILY
     Route: 048
     Dates: start: 1993

REACTIONS (4)
  - Viral load increased [Not Recovered/Not Resolved]
  - Pneumonia [Unknown]
  - Product dose omission issue [Unknown]
  - Drug ineffective [Unknown]
